FAERS Safety Report 11507956 (Version 1)
Quarter: 2015Q3

REPORT INFORMATION
  Report Type: Spontaneous
  Country: US (occurrence: None)
  Receive Date: 20150914
  Receipt Date: 20150914
  Transmission Date: 20151125
  Serious: Yes (Disabling)
  Sender: FDA-Public Use
  Company Number: None

PATIENT
  Age: 53 Year
  Sex: Female
  Weight: 65.77 kg

DRUGS (7)
  1. BENAZEPRIL [Concomitant]
     Active Substance: BENAZEPRIL HYDROCHLORIDE
  2. D3 [Concomitant]
     Active Substance: 25-HYDROXYCHOLECALCIFEROL, 5-TRANS-
  3. XANAX [Concomitant]
     Active Substance: ALPRAZOLAM
  4. DELTASONE [Suspect]
     Active Substance: PREDNISONE
     Indication: THYROIDITIS
     Dosage: 10 MG 6 TAB/ 5 D, 5 TAB /1 D, 4 TAB/ 1 D, 3 TAB/ 1 D, 2 TAB/ 1 D, 1 TAB/ 1 D ( BEFORE 9AM)
     Route: 048
     Dates: start: 20150808, end: 20150816
  5. LEVOXYL [Concomitant]
     Active Substance: LEVOTHYROXINE SODIUM
  6. CALCIUM [Concomitant]
     Active Substance: CALCIUM
  7. MULTIVITAMIN [Concomitant]
     Active Substance: VITAMINS

REACTIONS (9)
  - Oesophageal pain [None]
  - Oral discomfort [None]
  - Throat irritation [None]
  - Tongue disorder [None]
  - Dysuria [None]
  - Sunburn [None]
  - Gingival pain [None]
  - Glossodynia [None]
  - Nasal discomfort [None]

NARRATIVE: CASE EVENT DATE: 20150808
